FAERS Safety Report 9958470 (Version 2)
Quarter: 2014Q1

REPORT INFORMATION
  Report Type: Spontaneous
  Country: SI (occurrence: SI)
  Receive Date: 20140305
  Receipt Date: 20140305
  Transmission Date: 20141002
  Serious: Yes (Other)
  Sender: FDA-Public Use
  Company Number: SI-ROCHE-1310148

PATIENT
  Age: 53 Year
  Sex: Female
  Weight: 88 kg

DRUGS (7)
  1. ROACTEMRA [Suspect]
     Indication: RHEUMATOID ARTHRITIS
     Dosage: MOST RECENT DOSE OF TOCILIZUMAB ON 19/AUG/2013.
     Route: 042
     Dates: start: 20120329, end: 20131108
  2. PIRAMIL [Concomitant]
     Route: 065
  3. CALCIUM CARBONATE [Concomitant]
     Route: 065
  4. ALPHA D3 [Concomitant]
     Route: 065
  5. LEFLUNOMIDE [Concomitant]
     Route: 065
  6. METHYLPREDNISOLONE [Concomitant]
     Route: 065
  7. NAPROSYN [Concomitant]
     Route: 065

REACTIONS (1)
  - Liver disorder [Recovering/Resolving]
